FAERS Safety Report 4926485-X (Version None)
Quarter: 2006Q1

REPORT INFORMATION
  Report Type: 
  Country: None (occurrence: None)
  Receive Date: 20060228
  Receipt Date: 20051207
  Transmission Date: 20060701
  Serious: No
  Sender: FDA-Public Use
  Company Number: US-GLAXOSMITHKLINE-A0584974A

PATIENT
  Sex: Male

DRUGS (3)
  1. LAMICTAL [Suspect]
     Indication: ANXIETY
     Dosage: 25MG TWICE PER DAY
     Route: 048
  2. ASCORBIC ACID [Concomitant]
  3. CLONAZEPAM [Concomitant]

REACTIONS (2)
  - ARTHRALGIA [None]
  - PSYCHOMOTOR HYPERACTIVITY [None]
